FAERS Safety Report 9494599 (Version 1)
Quarter: 2013Q3

REPORT INFORMATION
  Report Type: Spontaneous
  Country: US (occurrence: US)
  Receive Date: 20130903
  Receipt Date: 20130903
  Transmission Date: 20140515
  Serious: Yes (Other)
  Sender: FDA-Public Use
  Company Number: US-PFIZER INC-2013249925

PATIENT
  Age: 45 Year
  Sex: Female
  Weight: 89.8 kg

DRUGS (5)
  1. LYRICA [Suspect]
     Indication: NEURALGIA
     Dosage: 75 MG, 2X/DAY
     Route: 048
     Dates: start: 201307, end: 201308
  2. BROMDAY [Concomitant]
     Dosage: UNK
     Route: 047
  3. FLUOROMETHOLONE [Concomitant]
     Dosage: UNK
     Route: 047
  4. FLEXERIL [Concomitant]
     Indication: RHEUMATOID ARTHRITIS
     Dosage: UNK, AS NEEDED
  5. PRILOSEC [Concomitant]
     Indication: GASTRIC DISORDER
     Dosage: UNK

REACTIONS (4)
  - Cystoid macular oedema [Unknown]
  - Vision blurred [Unknown]
  - Iritis [Unknown]
  - Visual acuity reduced [Unknown]
